FAERS Safety Report 7029677-1 (Version None)
Quarter: 2010Q4

REPORT INFORMATION
  Report Type: 
  Country: None (occurrence: None)
  Receive Date: 20101005
  Receipt Date: 20100927
  Transmission Date: 20110411
  Serious: Yes (Hospitalization)
  Sender: FDA-Public Use
  Company Number: US-GENENTECH-307201

PATIENT
  Sex: Male

DRUGS (2)
  1. NUTROPIN AQ [Suspect]
     Indication: GROWTH HORMONE DEFICIENCY
     Dosage: 0.9 MG, QD
     Route: 058
     Dates: start: 20100109
  2. HORMONE REPLACEMENT THERAPY (UNK INGREDIENTS) [Concomitant]
     Indication: HYPOPITUITARISM

REACTIONS (2)
  - HYPOPITUITARISM [None]
  - NERVOUS SYSTEM DISORDER [None]
